FAERS Safety Report 25908406 (Version 1)
Quarter: 2025Q4

REPORT INFORMATION
  Report Type: Spontaneous
  Country: JP (occurrence: JP)
  Receive Date: 20251010
  Receipt Date: 20251010
  Transmission Date: 20260118
  Serious: Yes (Hospitalization)
  Sender: EISAI
  Company Number: JP-Eisai-202508476_LEN-RCC_P_1

PATIENT
  Sex: Male

DRUGS (3)
  1. LENVATINIB [Suspect]
     Active Substance: LENVATINIB
     Indication: Renal cancer metastatic
     Dosage: DOSE AND FREQUENCY WERE UNKNOWN
     Route: 048
  2. LENVATINIB [Suspect]
     Active Substance: LENVATINIB
     Route: 048
  3. PEMBROLIZUMAB [Concomitant]
     Active Substance: PEMBROLIZUMAB
     Indication: Renal cancer metastatic
     Dosage: DOSE AND FREQUENCY WERE UNKNOWN
     Route: 041

REACTIONS (4)
  - Adrenal insufficiency [Unknown]
  - Hypertension [Unknown]
  - Malaise [Unknown]
  - Diarrhoea [Unknown]
